FAERS Safety Report 5095783-4 (Version None)
Quarter: 2006Q3

REPORT INFORMATION
  Report Type: 
  Country: None (occurrence: None)
  Receive Date: 20060905
  Receipt Date: 20060822
  Transmission Date: 20061208
  Serious: Yes (Other)
  Sender: FDA-Public Use
  Company Number: PHBS2006JP12854

PATIENT
  Age: 70 Year
  Sex: Female

DRUGS (4)
  1. AREDIA [Suspect]
     Indication: MULTIPLE MYELOMA
     Dosage: 45 MG, DRIP INFUSION EVERY MONTH
     Route: 042
     Dates: start: 20020101, end: 20060601
  2. THALIDOMIDE [Concomitant]
     Dosage: 200 MG/D
     Route: 065
     Dates: start: 20020101
  3. DECADRON [Concomitant]
     Dosage: 40 MG, UNK
     Route: 065
  4. ZOMETA [Suspect]
     Indication: MULTIPLE MYELOMA
     Dosage: 4 MG, UNK
     Route: 042
     Dates: start: 20060601, end: 20060714

REACTIONS (4)
  - DENTURE WEARER [None]
  - GINGIVAL INFECTION [None]
  - OSTEONECROSIS [None]
  - PAIN IN JAW [None]
